FAERS Safety Report 6493663-0 (Version None)
Quarter: 2009Q4

REPORT INFORMATION
  Report Type: 
  Country: None (occurrence: None)
  Receive Date: 20091214
  Receipt Date: 20091203
  Transmission Date: 20100525
  Serious: Yes (Hospitalization)
  Sender: FDA-Public Use
  Company Number: B0605824A

PATIENT
  Sex: Female
  Weight: 41 kg

DRUGS (3)
  1. PAXIL [Suspect]
     Indication: DEPRESSION
     Route: 048
     Dates: start: 20080319, end: 20080501
  2. METHYCOBAL [Suspect]
     Indication: NEUROPATHY PERIPHERAL
     Dosage: 500MCG THREE TIMES PER DAY
     Route: 048
     Dates: start: 20080319, end: 20080501
  3. TEGRETOL [Suspect]
     Dosage: 200MG PER DAY
     Route: 048
     Dates: start: 20080319, end: 20080501

REACTIONS (12)
  - BLOOD CREATININE DECREASED [None]
  - BLOOD LACTATE DEHYDROGENASE INCREASED [None]
  - BLOOD POTASSIUM INCREASED [None]
  - BLOOD UREA INCREASED [None]
  - C-REACTIVE PROTEIN INCREASED [None]
  - GAMMA-GLUTAMYLTRANSFERASE INCREASED [None]
  - LYMPHOCYTE COUNT DECREASED [None]
  - MONOCYTE COUNT DECREASED [None]
  - NEUTROPHIL COUNT INCREASED [None]
  - RASH [None]
  - TOXIC SKIN ERUPTION [None]
  - WHITE BLOOD CELL COUNT INCREASED [None]
